FAERS Safety Report 11590569 (Version 1)
Quarter: 2015Q4

REPORT INFORMATION
  Report Type: Spontaneous
  Country: US (occurrence: US)
  Receive Date: 20151002
  Receipt Date: 20151002
  Transmission Date: 20160304
  Serious: No
  Sender: FDA-Public Use
  Company Number: US-GLAXOSMITHKLINE-US2015GSK102493

PATIENT
  Age: 52 Year
  Sex: Female

DRUGS (8)
  1. LAMICTAL [Suspect]
     Active Substance: LAMOTRIGINE
     Indication: EPILEPSY
     Dosage: 400 MG, BID
     Route: 048
     Dates: start: 2000
  2. ZONEGRAN [Interacting]
     Active Substance: ZONISAMIDE
     Dosage: 100 MG, QD
     Dates: start: 20150310, end: 20150317
  3. VIMPAT [Interacting]
     Active Substance: LACOSAMIDE
     Indication: EPILEPSY
     Dosage: 350 MG, UNK
     Route: 048
     Dates: start: 20130529
  4. LEVOTHYROXINE. [Concomitant]
     Active Substance: LEVOTHYROXINE
  5. ZONEGRAN [Interacting]
     Active Substance: ZONISAMIDE
     Indication: EPILEPSY
     Dosage: 100 MG, QD
     Route: 048
     Dates: start: 20150202, end: 20150303
  6. TOPAMAX [Concomitant]
     Active Substance: TOPIRAMATE
  7. ZONEGRAN [Interacting]
     Active Substance: ZONISAMIDE
     Dosage: 200 MG, QD
     Dates: start: 20150304, end: 20150309
  8. VITAMIN D [Concomitant]
     Active Substance: CHOLECALCIFEROL

REACTIONS (13)
  - Haemoglobin decreased [Unknown]
  - Contusion [Recovered/Resolved]
  - Fall [Recovered/Resolved]
  - Rash pruritic [Unknown]
  - Drug interaction [Unknown]
  - Vision blurred [Recovered/Resolved]
  - Platelet count increased [Unknown]
  - Intentional product misuse [Unknown]
  - Menorrhagia [Recovered/Resolved]
  - Balance disorder [Recovered/Resolved]
  - Tendon injury [Recovered/Resolved]
  - Dizziness [Recovered/Resolved]
  - Rash [Recovered/Resolved]

NARRATIVE: CASE EVENT DATE: 20150309
